FAERS Safety Report 4870143-7 (Version None)
Quarter: 2005Q4

REPORT INFORMATION
  Report Type: 
  Country: None (occurrence: None)
  Receive Date: 20051228
  Receipt Date: 20051219
  Transmission Date: 20060501
  Serious: Yes (Other)
  Sender: FDA-Public Use
  Company Number: RENA-11638

PATIENT
  Age: 53 Year
  Sex: Male

DRUGS (5)
  1. PHOSBLOCK 250 MG TABLETS [Suspect]
     Indication: HYPERPHOSPHATAEMIA
     Dosage: 3 G DAILY PO
     Route: 048
     Dates: start: 20050625
  2. CALCIUM CARBONATE [Concomitant]
  3. AMLODIPINE BESYLATE [Concomitant]
  4. ETIZOLAM [Concomitant]
  5. BETAHISTINE MESILATE [Concomitant]

REACTIONS (1)
  - ACOUSTIC NEUROMA [None]
